FAERS Safety Report 9921781 (Version 1)
Quarter: 2014Q1

REPORT INFORMATION
  Report Type: Spontaneous
  Country: IT (occurrence: IT)
  Receive Date: 20140225
  Receipt Date: 20140225
  Transmission Date: 20141002
  Serious: Yes (Hospitalization, Other)
  Sender: FDA-Public Use
  Company Number: IT-ASTRAZENECA-2014SE11419

PATIENT
  Age: 3800 Week
  Sex: Male
  Weight: 84 kg

DRUGS (18)
  1. BRILIQUE [Suspect]
     Indication: CORONARY ARTERIAL STENT INSERTION
     Route: 048
     Dates: start: 20130401, end: 20140122
  2. BRILIQUE [Interacting]
     Indication: ANGIOPLASTY
     Route: 048
     Dates: start: 20130401, end: 20140122
  3. BRILIQUE [Interacting]
     Indication: THROMBOSIS PROPHYLAXIS
     Route: 048
     Dates: start: 20130401, end: 20140122
  4. BRILIQUE [Interacting]
     Indication: CORONARY ARTERIAL STENT INSERTION
     Route: 048
  5. BRILIQUE [Interacting]
     Indication: ANGIOPLASTY
     Route: 048
  6. BRILIQUE [Interacting]
     Indication: THROMBOSIS PROPHYLAXIS
     Route: 048
  7. CARDIOASPIRIN [Interacting]
     Indication: CORONARY ARTERIAL STENT INSERTION
     Route: 048
     Dates: start: 20130401, end: 20140217
  8. CARDIASPIRIN [Interacting]
     Indication: ANGIOPLASTY
     Route: 048
     Dates: start: 20130401, end: 20140217
  9. CARDIASPIRIN [Interacting]
     Indication: THROMBOSIS PROPHYLAXIS
     Route: 048
     Dates: start: 20130401, end: 20140217
  10. BISOPROLOL [Concomitant]
     Indication: MYOCARDIAL ISCHAEMIA
     Route: 048
  11. LEVEMIR [Concomitant]
     Indication: DIABETES MELLITUS
     Dosage: 24 IU, 100U/ML SOLUTION FOR INJECTION
     Route: 058
  12. TORVAST [Concomitant]
     Indication: HYPERCHOLESTEROLAEMIA
     Route: 048
  13. GLUCOPHAGE [Concomitant]
     Indication: DIABETES MELLITUS
     Route: 048
  14. NOVORAPID [Concomitant]
     Indication: DIABETES MELLITUS
     Route: 058
  15. PANTORC [Concomitant]
     Indication: GASTRITIS PROPHYLAXIS
     Route: 048
  16. PANTORC [Concomitant]
     Indication: PROPHYLAXIS AGAINST GASTROINTESTINAL ULCER
     Route: 048
  17. PANTORC [Concomitant]
     Indication: GASTRITIS PROPHYLAXIS
     Route: 048
  18. PANTORC [Concomitant]
     Indication: PROPHYLAXIS AGAINST GASTROINTESTINAL ULCER
     Route: 048

REACTIONS (3)
  - Drug interaction [Unknown]
  - Myocardial infarction [Unknown]
  - Gastric ulcer haemorrhage [Recovered/Resolved]
